FAERS Safety Report 4548303-4 (Version None)
Quarter: 2005Q1

REPORT INFORMATION
  Report Type: 
  Country: None (occurrence: None)
  Receive Date: 20050110
  Receipt Date: 20050104
  Transmission Date: 20050727
  Serious: Yes (Congenital Anomaly)
  Sender: FDA-Public Use
  Company Number: US-MERCK-0501USA00286B1

PATIENT
  Sex: Male

DRUGS (1)
  1. PROPECIA [Suspect]
     Dates: start: 20030930

REACTIONS (1)
  - PRADER-WILLI SYNDROME [None]
